FAERS Safety Report 18438629 (Version 5)
Quarter: 2021Q3

REPORT INFORMATION
  Report Type: Spontaneous
  Country: US (occurrence: US)
  Receive Date: 20201028
  Receipt Date: 20210921
  Transmission Date: 20211014
  Serious: Yes (Hospitalization, Other)
  Sender: FDA-Public Use
  Company Number: US-PFIZER INC-2020417065

PATIENT
  Age: 52 Year
  Sex: Male
  Weight: 204.1 kg

DRUGS (2)
  1. XELJANZ [Suspect]
     Active Substance: TOFACITINIB CITRATE
     Indication: RHEUMATOID ARTHRITIS
     Dosage: 5 MG, 2X/DAY
     Route: 048
     Dates: start: 2019
  2. XELJANZ [Suspect]
     Active Substance: TOFACITINIB CITRATE
     Dosage: 5 MG, 2X/DAY
     Route: 048
     Dates: start: 202101

REACTIONS (14)
  - Secretion discharge [Unknown]
  - Skin discolouration [Unknown]
  - Pain [Unknown]
  - Cardiac failure congestive [Unknown]
  - SARS-CoV-2 test positive [Unknown]
  - Swelling [Unknown]
  - Cough [Unknown]
  - Discouragement [Unknown]
  - Depressed mood [Unknown]
  - Peripheral swelling [Unknown]
  - Fall [Unknown]
  - Diarrhoea [Recovering/Resolving]
  - Arthralgia [Unknown]
  - Gait disturbance [Not Recovered/Not Resolved]

NARRATIVE: CASE EVENT DATE: 2020
